FAERS Safety Report 21884206 (Version 1)
Quarter: 2023Q1

REPORT INFORMATION
  Report Type: Spontaneous
  Country: US (occurrence: US)
  Receive Date: 20230119
  Receipt Date: 20230119
  Transmission Date: 20230417
  Serious: Yes (Hospitalization)
  Sender: FDA-Public Use
  Company Number: US-drreddys-SPO/USA/23/0159692

PATIENT
  Age: 80 Year
  Sex: Male

DRUGS (24)
  1. LENALIDOMIDE [Suspect]
     Active Substance: LENALIDOMIDE
     Indication: Plasma cell myeloma
     Dosage: TAKE 1 CAPSULE BY MOUTH EVERY DAY FOR 21 DAYS OF A 28 DAY CYCLE
     Route: 048
  2. LENALIDOMIDE [Suspect]
     Active Substance: LENALIDOMIDE
     Dosage: TAKE 1 CAPSULE BY MOUTH ONCE DAILY FOR 21 DAYS OF A 28 DAY CYCLE
     Route: 048
  3. Dexamethasone TAB 4 mg [Concomitant]
     Indication: Product used for unknown indication
  4. Cyanocobalamin SOL 1000MCG [Concomitant]
     Indication: Product used for unknown indication
  5. CARVEDILOL TAB 25MG [Concomitant]
     Indication: Product used for unknown indication
  6. AMIODARONE HYDROCHLORIDE [Concomitant]
     Active Substance: AMIODARONE HYDROCHLORIDE
  7. CARVEDILOL [Concomitant]
     Active Substance: CARVEDILOL
     Indication: Product used for unknown indication
  8. BUMETANIDE TAB 2MG [Concomitant]
     Indication: Product used for unknown indication
  9. DIPHENOXYLAT TAB 2.5-0.02 [Concomitant]
     Indication: Product used for unknown indication
  10. ALIGN CAP [Concomitant]
     Indication: Product used for unknown indication
  11. BENADRYL ALL CAP 25MG [Concomitant]
     Indication: Product used for unknown indication
  12. CALCIUM TAB 500MG [Concomitant]
     Indication: Product used for unknown indication
  13. CBD4 FREEZE CRE 4-1 percent [Concomitant]
     Indication: Product used for unknown indication
  14. LOMOTIL TAB 2.5-0.02MG [Concomitant]
     Indication: Product used for unknown indication
  15. LOPERAMIDE H CAP 2MG [Concomitant]
     Indication: Product used for unknown indication
  16. LOSARTAN POT AB 100MG [Concomitant]
     Indication: Product used for unknown indication
  17. MAGNESIUM TAB 250MG [Concomitant]
     Indication: Product used for unknown indication
  18. PROBIOTIC TBE [Concomitant]
     Indication: Product used for unknown indication
  19. SPIRONOLACTO TAB 25MG [Concomitant]
     Indication: Product used for unknown indication
  20. VELCADE SOL 3.5MG [Concomitant]
     Indication: Product used for unknown indication
  21. VITAMIN B12 TAB 100MCG [Concomitant]
     Indication: Product used for unknown indication
  22. VITAMIN D TAB 50 MCG [Concomitant]
     Indication: Product used for unknown indication
  23. ELIQUIS [Concomitant]
     Active Substance: APIXABAN
     Indication: Product used for unknown indication
  24. DARZALEX [Concomitant]
     Active Substance: DARATUMUMAB
     Indication: Product used for unknown indication

REACTIONS (3)
  - Blood pressure abnormal [Unknown]
  - Atrial fibrillation [Unknown]
  - Diarrhoea [Not Recovered/Not Resolved]
